FAERS Safety Report 17021830 (Version 1)
Quarter: 2019Q4

REPORT INFORMATION
  Report Type: Spontaneous
  Country: US (occurrence: US)
  Receive Date: 20191111
  Receipt Date: 20191111
  Transmission Date: 20200122
  Serious: Yes (Hospitalization)
  Sender: FDA-Public Use
  Company Number: None

PATIENT
  Sex: Female

DRUGS (10)
  1. LISINOPRIL. [Concomitant]
     Active Substance: LISINOPRIL
  2. SULFASALAZINE DELAYED-RELEASE [Concomitant]
     Active Substance: SULFASALAZINE
  3. DULOXETINE. [Concomitant]
     Active Substance: DULOXETINE
  4. PIROXICAM. [Concomitant]
     Active Substance: PIROXICAM
  5. COSENTYX [Suspect]
     Active Substance: SECUKINUMAB
     Indication: PRODUCT USED FOR UNKNOWN INDICATION
     Dosage: ?          OTHER FREQUENCY:Q4WKS;?
     Route: 058
     Dates: start: 20170112
  6. GABAPENTIN. [Concomitant]
     Active Substance: GABAPENTIN
  7. FOLIC ACID. [Concomitant]
     Active Substance: FOLIC ACID
  8. VITAMIN D3 [Concomitant]
     Active Substance: CHOLECALCIFEROL
  9. THYROID [Concomitant]
     Active Substance: LEVOTHYROXINE\LIOTHYRONINE
  10. METHOTREXATE. [Concomitant]
     Active Substance: METHOTREXATE

REACTIONS (1)
  - Hospitalisation [None]
